FAERS Safety Report 7956631-5 (Version None)
Quarter: 2011Q4

REPORT INFORMATION
  Report Type: 
  Country: None (occurrence: None)
  Receive Date: 20111205
  Receipt Date: 20111122
  Transmission Date: 20120403
  Serious: No
  Sender: FDA-Public Use
  Company Number: JP-PFIZER INC-2011233613

PATIENT
  Age: 64 Year
  Sex: Female

DRUGS (12)
  1. CINACALCET [Concomitant]
     Dosage: UNK
  2. SEVELAMER [Concomitant]
  3. ADOFEED [Concomitant]
     Dosage: UNK
  4. PANTOSIN [Concomitant]
  5. VERAPAMIL HCL [Concomitant]
     Dosage: UNK
  6. PLETAL [Concomitant]
     Dosage: UNK
  7. CELECOXIB [Suspect]
     Dosage: 200 MG, 1X/DAY
     Route: 048
     Dates: end: 20111001
  8. LANSOPRAZOLE [Concomitant]
     Dosage: UNK
  9. ALLOPURINOL [Concomitant]
     Dosage: UNK
  10. METHYCOBAL [Concomitant]
  11. DAIOU [Concomitant]
  12. LANTHANUM CARBONATE [Concomitant]
     Dosage: UNK

REACTIONS (1)
  - PROCEDURAL HYPOTENSION [None]
